FAERS Safety Report 12074527 (Version 1)
Quarter: 2016Q1

REPORT INFORMATION
  Report Type: Spontaneous
  Country: US (occurrence: US)
  Receive Date: 20160212
  Receipt Date: 20160212
  Transmission Date: 20160526
  Serious: No
  Sender: FDA-Public Use
  Company Number: US-BAYER-2016-016752

PATIENT
  Age: 33 Year
  Sex: Male
  Weight: 118.37 kg

DRUGS (2)
  1. LOTRIMIN ULTRA ANTIFUNGAL [Suspect]
     Active Substance: BUTENAFINE HYDROCHLORIDE
     Indication: CANDIDA INFECTION
  2. LOTRIMIN ULTRA ANTIFUNGAL [Suspect]
     Active Substance: BUTENAFINE HYDROCHLORIDE
     Indication: PSORIASIS
     Dosage: 1 DF, 3-5 TIMES A DAY
     Route: 061

REACTIONS (2)
  - Therapeutic response unexpected [None]
  - Product use issue [None]
